FAERS Safety Report 17897146 (Version 1)
Quarter: 2020Q2

REPORT INFORMATION
  Report Type: Report from Study
  Country: CA (occurrence: CA)
  Receive Date: 20200615
  Receipt Date: 20200615
  Transmission Date: 20200714
  Serious: Yes (Hospitalization, Other)
  Sender: FDA-Public Use
  Company Number: CA-PFIZER INC-2020229122

PATIENT
  Age: 67 Year
  Sex: Female
  Weight: 48 kg

DRUGS (18)
  1. GLYCERIN [GLYCEROL] [Suspect]
     Active Substance: GLYCERIN
  2. SYMBICORT [Suspect]
     Active Substance: BUDESONIDE\FORMOTEROL FUMARATE DIHYDRATE
  3. ZOPICLONE [Suspect]
     Active Substance: ZOPICLONE
     Dosage: 1 DF, 1X/DAY
     Route: 048
  4. BREO ELLIPTA [Suspect]
     Active Substance: FLUTICASONE FUROATE\VILANTEROL TRIFENATATE
  5. LACTULOSE. [Suspect]
     Active Substance: LACTULOSE
     Dosage: 15 ML, 2X/DAY
     Route: 048
  6. NAPROXEN. [Suspect]
     Active Substance: NAPROXEN
  7. SENNOSIDES. [Suspect]
     Active Substance: SENNOSIDES
     Dosage: 1 DF, 2X/DAY
  8. SULFAMETHOXAZOLE [Suspect]
     Active Substance: SULFAMETHOXAZOLE
  9. ACETAMINOPHEN. [Suspect]
     Active Substance: ACETAMINOPHEN
     Dosage: 2 DF, 6 EVERY 1 DAYS
     Route: 048
  10. SALBUTAMOL SULFATE [Suspect]
     Active Substance: ALBUTEROL SULFATE
     Indication: ASTHMA
     Dosage: 1 DF
  11. TUDORZA GENUAIR [Suspect]
     Active Substance: ACLIDINIUM BROMIDE
     Route: 055
  12. HYDROMORPHONE HYDROCHLORIDE. [Suspect]
     Active Substance: HYDROMORPHONE HYDROCHLORIDE
     Dosage: 1 DF, 6 EVERY 1 DAYS
     Route: 048
  13. LORAZEPAM. [Suspect]
     Active Substance: LORAZEPAM
     Dosage: 1 DF, 4X/DAY
  14. NITROGLYCERIN. [Suspect]
     Active Substance: NITROGLYCERIN
     Dosage: 1 DF
  15. MACROGOL 3350 [Suspect]
     Active Substance: POLYETHYLENE GLYCOL 3350
     Dosage: 1 DF, 2X/DAY
     Route: 048
  16. SECOBARBITAL [Suspect]
     Active Substance: SECOBARBITAL
     Dosage: UNK, 3X/DAY
  17. DIMENHYDRINATE. [Suspect]
     Active Substance: DIMENHYDRINATE
     Dosage: 1 DF, 2 EVERY 1 DAYS
  18. GLYCOPYRRONIUM BROMIDE [Suspect]
     Active Substance: GLYCOPYRRONIUM

REACTIONS (22)
  - Loss of personal independence in daily activities [Unknown]
  - Sleep disorder due to a general medical condition [Unknown]
  - Chest pain [Unknown]
  - Head injury [Unknown]
  - Fall [Unknown]
  - Neurological symptom [Unknown]
  - Therapeutic product effect incomplete [Unknown]
  - Somnolence [Unknown]
  - Cellulitis [Unknown]
  - Chronic obstructive pulmonary disease [Unknown]
  - Respiratory tract congestion [Unknown]
  - Bilevel positive airway pressure [Unknown]
  - Dyspnoea [Unknown]
  - Wheezing [Unknown]
  - Arteriosclerosis coronary artery [Unknown]
  - Headache [Unknown]
  - Pyrexia [Unknown]
  - Respiratory distress [Unknown]
  - Aortic arteriosclerosis [Unknown]
  - Asthma [Unknown]
  - Rash [Unknown]
  - Sputum discoloured [Unknown]
